FAERS Safety Report 24039272 (Version 1)
Quarter: 2024Q3

REPORT INFORMATION
  Report Type: Spontaneous
  Country: FR (occurrence: FR)
  Receive Date: 20240702
  Receipt Date: 20240702
  Transmission Date: 20241016
  Serious: Yes (Hospitalization)
  Sender: SANDOZ
  Company Number: None

PATIENT
  Age: 34 Year
  Sex: Male
  Weight: 69 kg

DRUGS (1)
  1. ACETAMINOPHEN [Suspect]
     Active Substance: ACETAMINOPHEN
     Indication: Product used for unknown indication
     Dosage: 3G LE 24/12/23 ET 3G LE 25/12/23
     Route: 048
     Dates: start: 20231224, end: 20231225

REACTIONS (5)
  - Toxicity to various agents [Recovering/Resolving]
  - Substance use disorder [Recovering/Resolving]
  - Coma scale abnormal [Recovering/Resolving]
  - Metabolic acidosis [Recovering/Resolving]
  - Hepatitis acute [Recovering/Resolving]

NARRATIVE: CASE EVENT DATE: 20231224
